FAERS Safety Report 26107544 (Version 1)
Quarter: 2025Q4

REPORT INFORMATION
  Report Type: Spontaneous
  Country: EU (occurrence: EU)
  Receive Date: 20251201
  Receipt Date: 20251201
  Transmission Date: 20260118
  Serious: Yes (Other)
  Sender: PFIZER
  Company Number: EU-PFIZER INC-PV202500139195

PATIENT
  Age: 3 Year
  Sex: Male

DRUGS (1)
  1. NGENLA [Suspect]
     Active Substance: SOMATROGON-GHLA
     Dosage: 13 MG, WEEKLY

REACTIONS (2)
  - Erythema multiforme [Unknown]
  - Bronchitis [Unknown]

NARRATIVE: CASE EVENT DATE: 20251118
